FAERS Safety Report 7893898 (Version 4)
Quarter: 2012Q4

REPORT INFORMATION
  Report Type: Report from Study
  Country: JP (occurrence: JP)
  Receive Date: 20110411
  Receipt Date: 20121112
  Transmission Date: 20130627
  Serious: Yes (Death, Life-Threatening, Hospitalization)
  Sender: FDA-Public Use
  Company Number: PHHY2011JP28597

PATIENT
  Age: 68 Year
  Sex: Male

DRUGS (10)
  1. VANCOMYCIN HYDROCHLORIDE [Suspect]
     Indication: PNEUMONIA STAPHYLOCOCCAL
     Dosage: 0.5 g, BID
     Route: 017
     Dates: start: 20101120, end: 20101123
  2. CIPROXAN [Concomitant]
     Indication: PNEUMONIA STAPHYLOCOCCAL
     Dosage: 300 mg, BID
     Route: 042
     Dates: start: 20101120, end: 20101122
  3. FULCALIQ [Concomitant]
     Route: 042
     Dates: start: 20101119, end: 20101122
  4. ELEMENMIC [Concomitant]
     Route: 042
     Dates: start: 20101119, end: 20101122
  5. VITA C [Concomitant]
     Dates: start: 20101119, end: 20101122
  6. NEOPHAGEN [Concomitant]
     Route: 042
     Dates: start: 20101119, end: 20101122
  7. ADONA [Concomitant]
     Dates: start: 20101119, end: 20101122
  8. KAYTWO N [Concomitant]
     Route: 042
     Dates: start: 20101119, end: 20101122
  9. NOVOLIN [Concomitant]
     Route: 042
     Dates: start: 20101119, end: 20101122
  10. ZOSYN [Concomitant]
     Indication: PNEUMONIA STAPHYLOCOCCAL
     Dosage: 2.25 g, TID
     Route: 042
     Dates: start: 20101123, end: 20101125

REACTIONS (14)
  - Circulatory collapse [Fatal]
  - Hypoxia [Fatal]
  - Hypotension [Fatal]
  - Cardio-respiratory arrest [Fatal]
  - Cholangitis [Fatal]
  - Infective thrombosis [Fatal]
  - Renal failure acute [Fatal]
  - Urine output decreased [Fatal]
  - Azotaemia [Fatal]
  - Renal impairment [Fatal]
  - Pneumonia [Fatal]
  - Sepsis [Fatal]
  - General physical health deterioration [Unknown]
  - Device related infection [Unknown]
